FAERS Safety Report 4277129-4 (Version None)
Quarter: 2004Q1

REPORT INFORMATION
  Report Type: 
  Country: None (occurrence: None)
  Receive Date: 20040120
  Receipt Date: 20040109
  Transmission Date: 20041129
  Serious: No
  Sender: FDA-Public Use
  Company Number: 03P-056-0245283-00

PATIENT
  Age: 63 Year
  Sex: Male

DRUGS (7)
  1. VALPROATE SODIUM [Suspect]
     Dosage: 1000 MG, 1 IN 1 D, PER ORAL
     Route: 048
     Dates: start: 20030410, end: 20031105
  2. MEPROBAMATE [Suspect]
     Dosage: 750 MG, 1 IN 1 D, PER ORAL
     Route: 048
     Dates: start: 20030929, end: 20031105
  3. HEPARIN-FRACTION, CALCIUM SALT [Suspect]
     Dosage: 0.3 ML, 1 IN 1 D, SUBCUTANEOUS
     Route: 058
     Dates: start: 20030910
  4. HYDROXYZINE [Suspect]
     Dosage: 25 MG, 1 IN 1 D, PER ORAL
     Route: 048
     Dates: start: 20030910, end: 20031105
  5. OFLOXACIN [Suspect]
     Dosage: 400 MG, 1 IN 1 D, PER ORAL
     Route: 048
     Dates: start: 20031104, end: 20031105
  6. CEFTRIAXONE [Suspect]
     Dosage: 2 GM, 1 IN 1 D, INTRAVENOUS
     Route: 042
     Dates: start: 20031104, end: 20031105
  7. VITAMIN B1-6 [Concomitant]

REACTIONS (4)
  - AGRANULOCYTOSIS [None]
  - CHILLS [None]
  - LUNG DISORDER [None]
  - PYREXIA [None]
